FAERS Safety Report 15900561 (Version 1)
Quarter: 2019Q1

REPORT INFORMATION
  Report Type: Spontaneous
  Country: US (occurrence: US)
  Receive Date: 20190131
  Receipt Date: 20190131
  Transmission Date: 20190417
  Serious: Yes (Other)
  Sender: FDA-Public Use
  Company Number: None

PATIENT
  Age: 40 Year
  Sex: Female
  Weight: 126 kg

DRUGS (15)
  1. ESTRADIOL 1MG TABLET [Suspect]
     Active Substance: ESTRADIOL
     Indication: HORMONE REPLACEMENT THERAPY
     Dosage: ?          QUANTITY:1 TABLET(S);?
     Route: 048
  2. EFFEXOR [Concomitant]
     Active Substance: VENLAFAXINE HYDROCHLORIDE
  3. CPAP [Concomitant]
     Active Substance: DEVICE
  4. MULTIVITAMIN [Concomitant]
     Active Substance: VITAMINS
  5. VITAMIN C [Concomitant]
     Active Substance: ASCORBIC ACID
  6. ACE [Concomitant]
  7. LORAZEPAM. [Concomitant]
     Active Substance: LORAZEPAM
  8. AMITRIPTYLINE [Concomitant]
     Active Substance: AMITRIPTYLINE
  9. VITAMIN D [Concomitant]
     Active Substance: CHOLECALCIFEROL
  10. VITAMIN B [Concomitant]
     Active Substance: VITAMIN B
  11. SINGULAIR [Concomitant]
     Active Substance: MONTELUKAST SODIUM
  12. IBU [Concomitant]
     Active Substance: IBUPROFEN
  13. TUMS [Concomitant]
     Active Substance: CALCIUM CARBONATE
  14. EPIPEN [Concomitant]
     Active Substance: EPINEPHRINE
  15. ESTRADIOL. [Concomitant]
     Active Substance: ESTRADIOL

REACTIONS (9)
  - Mania [None]
  - Depression [None]
  - Feeling of despair [None]
  - Fatigue [None]
  - Anxiety [None]
  - Fear [None]
  - Product formulation issue [None]
  - Product substitution issue [None]
  - Condition aggravated [None]

NARRATIVE: CASE EVENT DATE: 20180824
